FAERS Safety Report 8470204-X (Version None)
Quarter: 2012Q2

REPORT INFORMATION
  Report Type: 
  Country: None (occurrence: None)
  Receive Date: 20120621
  Receipt Date: 20120621
  Transmission Date: 20120825
  Serious: Yes (Hospitalization)
  Sender: FDA-Public Use
  Company Number: None

PATIENT
  Age: 58 Year
  Sex: Male
  Weight: 111.63 kg

DRUGS (5)
  1. CARVEDILOL [Concomitant]
  2. WARFARIN SODIUM [Concomitant]
  3. BENDAMUSTINE HYDROCHLORIDE [Suspect]
     Indication: HODGKIN'S DISEASE
     Dosage: 137 MG/INTRAVENOUS (042)
     Route: 042
     Dates: start: 20120529
  4. BENDAMUSTINE HYDROCHLORIDE [Suspect]
     Indication: HODGKIN'S DISEASE
     Dosage: 137 MG/INTRAVENOUS (042)
     Route: 042
     Dates: start: 20120530
  5. GEMCITABINE [Suspect]
     Indication: HODGKIN'S DISEASE
     Dosage: 2280MG/INTRAVENOUS (042)
     Route: 042
     Dates: start: 20120529

REACTIONS (7)
  - HODGKIN'S DISEASE [None]
  - ATRIAL FLUTTER [None]
  - PYREXIA [None]
  - FATIGUE [None]
  - NIGHT SWEATS [None]
  - PLATELET COUNT DECREASED [None]
  - DISEASE RECURRENCE [None]
